FAERS Safety Report 6395201-X (Version None)
Quarter: 2009Q4

REPORT INFORMATION
  Report Type: 
  Country: None (occurrence: None)
  Receive Date: 20091009
  Receipt Date: 20090929
  Transmission Date: 20100525
  Serious: Yes (Hospitalization)
  Sender: FDA-Public Use
  Company Number: US-PFIZER INC-2009277710

PATIENT
  Age: 69 Year
  Sex: Male
  Weight: 95.238 kg

DRUGS (1)
  1. CHANTIX [Suspect]
     Indication: SMOKING CESSATION THERAPY
     Dates: start: 20070101, end: 20080201

REACTIONS (2)
  - AGGRESSION [None]
  - PHYSICAL ASSAULT [None]
